FAERS Safety Report 24291871 (Version 2)
Quarter: 2024Q4

REPORT INFORMATION
  Report Type: Report from Study
  Country: US (occurrence: US)
  Receive Date: 20240906
  Receipt Date: 20241025
  Transmission Date: 20250115
  Serious: No
  Sender: ALEXION PHARMACEUTICALS
  Company Number: US-AstraZeneca-CH-00698229A

PATIENT

DRUGS (4)
  1. STRENSIQ [Suspect]
     Active Substance: ASFOTASE ALFA
     Indication: Hypophosphatasia
     Dosage: 70 MILLIGRAM, TIW
  2. STRENSIQ [Suspect]
     Active Substance: ASFOTASE ALFA
     Dosage: 70 MILLIGRAM, TIW
  3. STRENSIQ [Suspect]
     Active Substance: ASFOTASE ALFA
     Dosage: 70 MILLIGRAM, TIW
  4. STRENSIQ [Suspect]
     Active Substance: ASFOTASE ALFA
     Dosage: 70 MILLIGRAM, TIW

REACTIONS (4)
  - Flank pain [Recovered/Resolved]
  - Arthralgia [Recovered/Resolved]
  - Injection site erythema [Recovered/Resolved]
  - Injection site mass [Recovered/Resolved]
